FAERS Safety Report 16477382 (Version 3)
Quarter: 2022Q1

REPORT INFORMATION
  Report Type: Report from Study
  Country: US (occurrence: US)
  Receive Date: 20190626
  Receipt Date: 20220214
  Transmission Date: 20220423
  Serious: Yes (Hospitalization)
  Sender: FDA-Public Use
  Company Number: PHHO2019US006714

PATIENT
  Age: 18 Year
  Sex: Male

DRUGS (15)
  1. RUXOLITINIB [Suspect]
     Active Substance: RUXOLITINIB
     Indication: Acute lymphocytic leukaemia
     Dosage: 110 MG, BID
     Route: 048
     Dates: start: 20190218
  2. RUXOLITINIB [Suspect]
     Active Substance: RUXOLITINIB
     Dosage: 105 MG, BID
     Route: 048
     Dates: start: 20190430
  3. METHOTREXATE [Suspect]
     Active Substance: METHOTREXATE
     Indication: Acute lymphocytic leukaemia
     Dosage: UNK
     Route: 048
     Dates: start: 20190218
  4. METHOTREXATE [Suspect]
     Active Substance: METHOTREXATE
     Dosage: UNK
     Route: 037
     Dates: start: 20190218
  5. METHOTREXATE [Suspect]
     Active Substance: METHOTREXATE
     Dosage: 10500 MG, EVERY 24 HRS
     Route: 042
     Dates: start: 20190430, end: 20190501
  6. METHOTREXATE [Suspect]
     Active Substance: METHOTREXATE
     Dosage: 15 MG, SINGLE
     Route: 037
     Dates: start: 20190430
  7. METHOTREXATE [Suspect]
     Active Substance: METHOTREXATE
     Dosage: 10500 MG, EVERY 24 HRS
     Route: 042
     Dates: start: 20190604
  8. VINCRISTINE [Concomitant]
     Active Substance: VINCRISTINE
     Indication: Acute lymphocytic leukaemia
     Dosage: UNK
     Route: 042
     Dates: start: 20190218
  9. VINCRISTINE [Concomitant]
     Active Substance: VINCRISTINE
     Dosage: 2 MG, PUCH ONE DOSE
     Route: 042
     Dates: start: 20190430, end: 20190430
  10. VINCRISTINE [Concomitant]
     Active Substance: VINCRISTINE
     Dosage: 2 MILLIGRAM, SINGLE
     Route: 042
     Dates: start: 20190604
  11. LEUCOVORIN [Concomitant]
     Active Substance: LEUCOVORIN
     Indication: Acute lymphocytic leukaemia
     Dosage: 896 MG, Q6H
     Route: 042
     Dates: start: 20190502, end: 20190509
  12. LEUCOVORIN [Concomitant]
     Active Substance: LEUCOVORIN
     Dosage: 750 MG, Q6H
     Route: 042
     Dates: start: 20190606
  13. MERCAPTOPURINE [Concomitant]
     Active Substance: MERCAPTOPURINE
     Indication: Acute lymphocytic leukaemia
     Dosage: UNK
     Route: 065
     Dates: start: 20190218
  14. MERCAPTOPURINE [Concomitant]
     Active Substance: MERCAPTOPURINE
     Dosage: 450 MG, (75 MG X 1(S), 50 X 6 (M.S)
     Route: 048
     Dates: start: 20190430, end: 20190513
  15. MERCAPTOPURINE [Concomitant]
     Active Substance: MERCAPTOPURINE
     Dosage: 375 MG
     Route: 048
     Dates: start: 20190604

REACTIONS (1)
  - Febrile neutropenia [Recovered/Resolved]

NARRATIVE: CASE EVENT DATE: 20190610
